FAERS Safety Report 9009652 (Version 1)
Quarter: 2013Q1

REPORT INFORMATION
  Report Type: Spontaneous
  Country: DK (occurrence: DK)
  Receive Date: 20130110
  Receipt Date: 20130110
  Transmission Date: 20140127
  Serious: Yes (Other)
  Sender: FDA-Public Use
  Company Number: DK-PFIZER INC-2011222140

PATIENT
  Age: 73 Year
  Sex: Male
  Weight: 67.5 kg

DRUGS (10)
  1. FLUOROURACIL [Suspect]
     Indication: COLON CANCER METASTATIC
     Dosage: DOSAGE: 700/4300. INTERVAL 14 DAYS. IN ALL 12 CYCLES
     Dates: start: 20081231, end: 200906
  2. FOLINIC ACID [Suspect]
     Indication: COLON CANCER METASTATIC
     Dosage: DOSAGE: 700. INTERVAL 14 DAYS. IN ALL 12 CYCLES
     Dates: start: 20081231, end: 200906
  3. OXALIPLATIN [Suspect]
     Indication: COLON CANCER METASTATIC
     Dosage: 150 MG FIRST 4 TIMES
     Dates: start: 20081231
  4. OXALIPLATIN [Suspect]
     Dosage: 115 MG NEXT 7 TIMES. INTERVAL 14 DAYS. IN ALL 12 CYCLES
     Dates: end: 200906
  5. PREDNISOLON [Concomitant]
     Indication: PROPHYLAXIS OF NAUSEA AND VOMITING
     Dosage: 50 MG, 1X/DAY FOR ONE DAY
  6. PREDNISOLON [Concomitant]
     Dosage: 25 MG, 2X/DAY - FOR TWO DAYS
  7. EMPERAL [Concomitant]
     Indication: PROPHYLAXIS OF NAUSEA AND VOMITING
     Dosage: 30 MG, AS NEEDED, MAX X4
  8. ONDANSETRON [Concomitant]
     Indication: PROPHYLAXIS OF NAUSEA AND VOMITING
     Dosage: 8 MG, 1X/DAY FOR ONE DAY
  9. MOTILIUM ^JANSSEN^ [Concomitant]
     Indication: PROPHYLAXIS OF NAUSEA AND VOMITING
     Dosage: 20 MG, AS NEEDED, MAX X3
  10. TEMESTA [Concomitant]
     Indication: PROPHYLAXIS OF NAUSEA AND VOMITING
     Dosage: 1 MG, AS NEEDED, MAX X3

REACTIONS (5)
  - Polyneuropathy [Not Recovered/Not Resolved]
  - Balance disorder [Not Recovered/Not Resolved]
  - Coordination abnormal [Recovered/Resolved]
  - Hypoaesthesia [Not Recovered/Not Resolved]
  - Motor dysfunction [Not Recovered/Not Resolved]
